FAERS Safety Report 14791336 (Version 1)
Quarter: 2018Q2

REPORT INFORMATION
  Report Type: Spontaneous
  Country: US (occurrence: US)
  Receive Date: 20180413
  Receipt Date: 20180413
  Transmission Date: 20180711
  Serious: Yes (Disabling)
  Sender: FDA-Public Use
  Company Number: None

PATIENT
  Age: 34 Year
  Sex: Female
  Weight: 67.5 kg

DRUGS (3)
  1. MEFLOQUINE [Suspect]
     Active Substance: MEFLOQUINE
     Indication: MALARIA PROPHYLAXIS
     Dosage: ?          OTHER FREQUENCY:ONCE PER WEEK;?
     Route: 048
     Dates: start: 20180201, end: 20180208
  2. IBUPROFEN. [Concomitant]
     Active Substance: IBUPROFEN
  3. LORATADINE. [Concomitant]
     Active Substance: LORATADINE

REACTIONS (6)
  - Anxiety [None]
  - Agitation [None]
  - Abnormal dreams [None]
  - Anger [None]
  - Affective disorder [None]
  - Depression [None]

NARRATIVE: CASE EVENT DATE: 20180201
